FAERS Safety Report 7266314-5 (Version None)
Quarter: 2011Q1

REPORT INFORMATION
  Report Type: 
  Country: None (occurrence: None)
  Receive Date: 20110131
  Receipt Date: 20110123
  Transmission Date: 20110831
  Serious: Yes (Other)
  Sender: FDA-Public Use
  Company Number: US-SANOFI-AVENTIS-2011SA005090

PATIENT
  Age: 54 Year
  Sex: Female

DRUGS (3)
  1. SOLOSTAR [Suspect]
     Dates: start: 20100101
  2. LANTUS [Suspect]
     Dosage: DOSE:40 UNIT(S)
     Route: 058
     Dates: start: 20100101
  3. HUMALOG [Suspect]
     Dosage: 14 UNITS , 14 UNITS AND 30 UNITS
     Route: 058

REACTIONS (2)
  - HYPOGLYCAEMIA [None]
  - WRONG DRUG ADMINISTERED [None]
